FAERS Safety Report 16333083 (Version 2)
Quarter: 2020Q3

REPORT INFORMATION
  Report Type: Spontaneous
  Country: US (occurrence: US)
  Receive Date: 20190520
  Receipt Date: 20200723
  Transmission Date: 20201102
  Serious: Yes (Hospitalization, Other)
  Sender: FDA-Public Use
  Company Number: US-GILEAD-2019-0407949

PATIENT
  Age: 38 Year
  Sex: Male
  Weight: 73.92 kg

DRUGS (26)
  1. SUCCINYLCHOLINE CHLORIDE. [Concomitant]
     Active Substance: SUCCINYLCHOLINE CHLORIDE
  2. TYLENOL [Concomitant]
     Active Substance: ACETAMINOPHEN
  3. OMNIPAQUE [Concomitant]
     Active Substance: IOHEXOL
  4. PENICILLIN G POTASSIUM. [Concomitant]
     Active Substance: PENICILLIN G POTASSIUM
  5. ROCURONIUM [Concomitant]
     Active Substance: ROCURONIUM BROMIDE
  6. DILANTIN [Concomitant]
     Active Substance: PHENYTOIN
  7. MAVYRET [Concomitant]
     Active Substance: GLECAPREVIR\PIBRENTASVIR
  8. NORCO [Concomitant]
     Active Substance: ACETAMINOPHEN\HYDROCODONE BITARTRATE
  9. SYMTUZA [Concomitant]
     Active Substance: COBICISTAT\DARUNAVIR\EMTRICITABINE\TENOFOVIR ALAFENAMIDE
  10. BACTRIM [Concomitant]
     Active Substance: SULFAMETHOXAZOLE\TRIMETHOPRIM
  11. KENALOG [Concomitant]
     Active Substance: TRIAMCINOLONE ACETONIDE
  12. NEXIUM [Concomitant]
     Active Substance: ESOMEPRAZOLE MAGNESIUM
  13. ATRIPLA [Suspect]
     Active Substance: EFAVIRENZ\EMTRICITABINE\TENOFOVIR DISOPROXIL FUMARATE
     Indication: HIV INFECTION
     Dosage: UNK
     Route: 048
     Dates: start: 2014, end: 2018
  14. ETOMIDATE. [Concomitant]
     Active Substance: ETOMIDATE
  15. LIDOCAINE. [Concomitant]
     Active Substance: LIDOCAINE
  16. CEREBYX [Concomitant]
     Active Substance: FOSPHENYTOIN SODIUM
  17. ATRIPLA [Suspect]
     Active Substance: EFAVIRENZ\EMTRICITABINE\TENOFOVIR DISOPROXIL FUMARATE
     Dosage: UNK
     Route: 065
     Dates: start: 20130604, end: 20170710
  18. PHENERGAN [Concomitant]
     Active Substance: PROMETHAZINE HYDROCHLORIDE
  19. REGLAN [Concomitant]
     Active Substance: METOCLOPRAMIDE HYDROCHLORIDE
  20. MORPHINE [Concomitant]
     Active Substance: MORPHINE
  21. COLACE [Concomitant]
     Active Substance: DOCUSATE SODIUM
  22. IBUPROFEN. [Concomitant]
     Active Substance: IBUPROFEN
  23. DESCOVY [Concomitant]
     Active Substance: EMTRICITABINE\TENOFOVIR ALAFENAMIDE FUMARATE
  24. PREZCOBIX [Concomitant]
     Active Substance: COBICISTAT\DARUNAVIR ETHANOLATE
  25. PROPOFOL. [Concomitant]
     Active Substance: PROPOFOL
  26. MANNITOL. [Concomitant]
     Active Substance: MANNITOL

REACTIONS (14)
  - General physical health deterioration [Unknown]
  - Renal failure [Unknown]
  - Emotional distress [Not Recovered/Not Resolved]
  - Pain [Not Recovered/Not Resolved]
  - Limb injury [Unknown]
  - Bone density decreased [Unknown]
  - Anhedonia [Not Recovered/Not Resolved]
  - Blood creatinine increased [Not Recovered/Not Resolved]
  - Dysstasia [Not Recovered/Not Resolved]
  - Osteopenia [Not Recovered/Not Resolved]
  - Anxiety [Not Recovered/Not Resolved]
  - Depression [Not Recovered/Not Resolved]
  - Renal disorder [Unknown]
  - Economic problem [Not Recovered/Not Resolved]

NARRATIVE: CASE EVENT DATE: 20140208
